FAERS Safety Report 17553958 (Version 4)
Quarter: 2020Q2

REPORT INFORMATION
  Report Type: Report from Study
  Country: None (occurrence: CO)
  Receive Date: 20200317
  Receipt Date: 20200521
  Transmission Date: 20200713
  Serious: Yes (Hospitalization, Other)
  Sender: FDA-Public Use
  Company Number: CO-ABBVIE-20K-036-3323113-00

PATIENT
  Sex: Male
  Weight: 70 kg

DRUGS (2)
  1. HUMIRA [Suspect]
     Active Substance: ADALIMUMAB
     Indication: PSORIASIS
     Route: 058
     Dates: start: 20140526
  2. HUMIRA [Suspect]
     Active Substance: ADALIMUMAB
     Indication: PSORIASIS
     Dosage: HUMIRA AC
     Route: 058
     Dates: end: 20200212

REACTIONS (8)
  - General physical health deterioration [Recovered/Resolved]
  - Orchitis [Not Recovered/Not Resolved]
  - Asthenia [Not Recovered/Not Resolved]
  - Dizziness [Recovering/Resolving]
  - Hypertension [Recovering/Resolving]
  - Urinary tract infection [Recovering/Resolving]
  - Prostatomegaly [Not Recovered/Not Resolved]
  - Diabetes mellitus [Recovering/Resolving]

NARRATIVE: CASE EVENT DATE: 2020
